FAERS Safety Report 22360674 (Version 1)
Quarter: 2023Q2

REPORT INFORMATION
  Report Type: Spontaneous
  Country: PH (occurrence: PH)
  Receive Date: 20230524
  Receipt Date: 20230524
  Transmission Date: 20230721
  Serious: Yes (Death, Other)
  Sender: FDA-Public Use
  Company Number: PH-OTSUKA-2023_013484

PATIENT
  Sex: Female

DRUGS (2)
  1. SAMSCA [Suspect]
     Active Substance: TOLVAPTAN
     Indication: Pleural effusion
     Dosage: (15 MG, HALF TABLET A DAY 7.5 MG, QD)
     Route: 048
     Dates: start: 20230428
  2. SAMSCA [Suspect]
     Active Substance: TOLVAPTAN
     Indication: Pericardial effusion
     Dosage: 15 MG, QD
     Route: 048

REACTIONS (4)
  - Death [Fatal]
  - Fluid retention [Unknown]
  - Wrong technique in product usage process [Unknown]
  - Product use in unapproved indication [Unknown]

NARRATIVE: CASE EVENT DATE: 20230428
